FAERS Safety Report 25554090 (Version 1)
Quarter: 2025Q3

REPORT INFORMATION
  Report Type: Spontaneous
  Country: IN (occurrence: IN)
  Receive Date: 20250715
  Receipt Date: 20250715
  Transmission Date: 20251021
  Serious: Yes (Death, Hospitalization, Other)
  Sender: RANBAXY
  Company Number: IN-SUN PHARMACEUTICAL INDUSTRIES LTD-2025R1-509180

PATIENT
  Age: 65 Year
  Sex: Female

DRUGS (1)
  1. METHOTREXATE [Suspect]
     Active Substance: METHOTREXATE
     Indication: Severe cutaneous adverse reaction
     Route: 065

REACTIONS (5)
  - Sepsis [Fatal]
  - Pancytopenia [Fatal]
  - SJS-TEN overlap [Unknown]
  - Toxicity to various agents [Unknown]
  - Accidental overdose [Unknown]
